FAERS Safety Report 12831728 (Version 1)
Quarter: 2016Q4

REPORT INFORMATION
  Report Type: Report from Study
  Country: US (occurrence: US)
  Receive Date: 20161010
  Receipt Date: 20161010
  Transmission Date: 20170207
  Serious: Yes (Hospitalization, Other)
  Sender: FDA-Public Use
  Company Number: US-ROCHE-1409559

PATIENT
  Age: 68 Year
  Sex: Female
  Weight: 64.6 kg

DRUGS (20)
  1. BEVACIZUMAB [Suspect]
     Active Substance: BEVACIZUMAB
     Dosage: COURSE 4, DOSE: 1000 MG, NO DOSE CHANGE
     Route: 042
     Dates: start: 20130913
  2. VELIPARIB [Suspect]
     Active Substance: VELIPARIB
     Dosage: COURSE 2, UNPLANNED DOSE CHANGE
     Route: 048
     Dates: start: 20130801
  3. VELIPARIB [Suspect]
     Active Substance: VELIPARIB
     Indication: OVARIAN EPITHELIAL CANCER
     Dosage: COURSE 1, NO DOSE CHANGE
     Route: 048
     Dates: start: 20130711
  4. VELIPARIB [Suspect]
     Active Substance: VELIPARIB
     Dosage: COURSE 4, UNPLANNED DOSE CHANGE
     Route: 048
     Dates: start: 20130913
  5. BEVACIZUMAB [Suspect]
     Active Substance: BEVACIZUMAB
     Dosage: COURSE 9, NO DOSE CHANGE
     Route: 042
     Dates: start: 20140115
  6. BEVACIZUMAB [Suspect]
     Active Substance: BEVACIZUMAB
     Dosage: COURSE 11, NO DOSE CHANGE, DOSE 1000 MG
     Route: 042
     Dates: start: 20140312
  7. VELIPARIB [Suspect]
     Active Substance: VELIPARIB
     Dosage: COURSE 5, UNPLANNED DOSE CHANGE
     Route: 048
     Dates: start: 20131024
  8. VELIPARIB [Suspect]
     Active Substance: VELIPARIB
     Dosage: COURSE 6, UNPLANNED DOSE CHANGE
     Route: 048
     Dates: start: 20131114
  9. BEVACIZUMAB [Suspect]
     Active Substance: BEVACIZUMAB
     Dosage: COURSE 10, NO DOSE CHANGE, DOSE 1000 MG
     Route: 042
     Dates: start: 20140205
  10. BEVACIZUMAB [Suspect]
     Active Substance: BEVACIZUMAB
     Dosage: COURSE 12, NO DOSE CHANGE, DOSE 1000 MG
     Route: 042
     Dates: start: 20140402
  11. VELIPARIB [Suspect]
     Active Substance: VELIPARIB
     Dosage: COURSE 3, UNPLANNED DOSE CHANGE
     Route: 048
     Dates: start: 20130822
  12. PACLITAXEL. [Suspect]
     Active Substance: PACLITAXEL
     Indication: OVARIAN EPITHELIAL CANCER
     Dosage: OVER 3 HRS ON DAY 1 FOR CYCLES 1 AND 2-6
     Route: 042
     Dates: start: 20130711
  13. BEVACIZUMAB [Suspect]
     Active Substance: BEVACIZUMAB
     Indication: OVARIAN EPITHELIAL CANCER
     Dosage: COURSE 2, DOSE: 1000 MG, NO DOSE CHANGE
     Route: 042
     Dates: start: 20130801
  14. BEVACIZUMAB [Suspect]
     Active Substance: BEVACIZUMAB
     Dosage: COURSE 3, DOSE: 1000 MG, NO DOSE CHANGE
     Route: 042
     Dates: start: 20130822
  15. BEVACIZUMAB [Suspect]
     Active Substance: BEVACIZUMAB
     Dosage: COURSE 5, DOSE: 1000 MG, NO DOSE CHANGE
     Route: 042
     Dates: start: 20131024
  16. BEVACIZUMAB [Suspect]
     Active Substance: BEVACIZUMAB
     Dosage: COURSE 6, DOSE: 1000 MG, NO DOSE CHANGE
     Route: 042
     Dates: start: 20131114
  17. BEVACIZUMAB [Suspect]
     Active Substance: BEVACIZUMAB
     Dosage: COURSE 13, NO DOSE CHANGE, DOSE 1000 MG
     Route: 042
     Dates: start: 20140423
  18. CARBOPLATIN. [Suspect]
     Active Substance: CARBOPLATIN
     Indication: OVARIAN EPITHELIAL CANCER
     Dosage: AUC = 6 IV OVER 30 MINS ON DAY 1 FOR CYCLES 1 AND 2-6
     Route: 042
     Dates: start: 20130711
  19. BEVACIZUMAB [Suspect]
     Active Substance: BEVACIZUMAB
     Dosage: COURSE 8, NO DOSE CHANGE
     Route: 042
     Dates: start: 20131226
  20. BEVACIZUMAB [Suspect]
     Active Substance: BEVACIZUMAB
     Dosage: COURSE 7, DOSE: 1000 MG, NO DOSE CHANGE
     Route: 042
     Dates: start: 20131205

REACTIONS (10)
  - Neutrophil count decreased [Unknown]
  - Hypertension [Unknown]
  - Spinal fracture [Unknown]
  - Small intestinal obstruction [Unknown]
  - Anaemia [Unknown]
  - White blood cell count decreased [Unknown]
  - Sepsis [Unknown]
  - Febrile neutropenia [Unknown]
  - Embolism [Unknown]
  - Abdominal pain [Unknown]

NARRATIVE: CASE EVENT DATE: 20140519
